FAERS Safety Report 21520260 (Version 1)
Quarter: 2022Q4

REPORT INFORMATION
  Report Type: Report from Study
  Country: US (occurrence: US)
  Receive Date: 20221028
  Receipt Date: 20221028
  Transmission Date: 20230113
  Serious: No
  Sender: FDA-Public Use
  Company Number: US-ABBVIE-22K-163-4499435-00

PATIENT
  Sex: Female

DRUGS (2)
  1. SKYRIZI [Suspect]
     Active Substance: RISANKIZUMAB-RZAA
     Indication: Psoriasis
     Dosage: WEEK 4?FORM STRENGTH 150 MG
     Route: 058
     Dates: start: 20220725
  2. SKYRIZI [Suspect]
     Active Substance: RISANKIZUMAB-RZAA
     Dosage: WEEK 0 ?FORM STRENGTH 150 MG
     Route: 058
     Dates: start: 20220525, end: 20220525

REACTIONS (4)
  - Injection site pain [Unknown]
  - Skin exfoliation [Recovering/Resolving]
  - Fatigue [Unknown]
  - Injection site bruising [Unknown]
